FAERS Safety Report 7606604-7 (Version None)
Quarter: 2011Q3

REPORT INFORMATION
  Report Type: 
  Country: None (occurrence: None)
  Receive Date: 20110713
  Receipt Date: 20110708
  Transmission Date: 20111222
  Serious: Yes (Life-Threatening, Hospitalization, Other)
  Sender: FDA-Public Use
  Company Number: PHHY2011US60392

PATIENT
  Sex: Female

DRUGS (9)
  1. MORPHINE SULFATE [Concomitant]
     Dosage: 60 MG, BID
     Route: 048
  2. MIDODRINE HYDROCHLORIDE [Concomitant]
     Dosage: 15 MG, TID
  3. GABAPENTIN [Concomitant]
     Dosage: 400 MG, TID
     Route: 048
  4. LEVOTHYROXINE SODIUM [Concomitant]
     Dosage: 125 UG, QD
     Route: 048
  5. FENTANYL-100 [Concomitant]
     Dosage: 25 UG, UNK
     Route: 062
  6. CIPRODEX OTIC [Concomitant]
     Dosage: UNK UKN, OT
  7. GILENYA [Suspect]
     Indication: MULTIPLE SCLEROSIS
     Dosage: 0.5 MG, DAILY
     Route: 048
     Dates: start: 20110617, end: 20110617
  8. AMITRIPTYLINE HCL [Concomitant]
     Dosage: 25 MG, UNK
     Route: 048
  9. SOMA [Concomitant]
     Dosage: 350 MG, UNK
     Route: 048

REACTIONS (15)
  - BLOOD PRESSURE DECREASED [None]
  - RASH ERYTHEMATOUS [None]
  - MUSCULAR WEAKNESS [None]
  - SINUS BRADYCARDIA [None]
  - ELECTROCARDIOGRAM QT PROLONGED [None]
  - ERYTHEMA [None]
  - PAIN [None]
  - FATIGUE [None]
  - PALLOR [None]
  - FOLLICULITIS [None]
  - HYPOAESTHESIA [None]
  - HYPERHIDROSIS [None]
  - WEIGHT DECREASED [None]
  - CHEST PAIN [None]
  - NERVOUS SYSTEM DISORDER [None]
